FAERS Safety Report 9361857 (Version 1)
Quarter: 2013Q2

REPORT INFORMATION
  Report Type: Report from Study
  Country: DE (occurrence: TR)
  Receive Date: 20130621
  Receipt Date: 20130621
  Transmission Date: 20140414
  Serious: Yes (Death, Hospitalization, Other)
  Sender: FDA-Public Use
  Company Number: DE-ACTELION-A-US2013-84748

PATIENT
  Age: 49 Year
  Sex: Female

DRUGS (2)
  1. VENTAVIS [Suspect]
     Indication: PULMONARY ARTERIAL HYPERTENSION
     Dosage: UNK, 6X1
     Route: 055
     Dates: start: 20091020
  2. TRACLEER [Concomitant]

REACTIONS (5)
  - Death [Fatal]
  - General physical health deterioration [Unknown]
  - Gastrointestinal disorder [Unknown]
  - Oedema [Unknown]
  - Peritonitis [Unknown]
